FAERS Safety Report 16555499 (Version 2)
Quarter: 2020Q1

REPORT INFORMATION
  Report Type: Spontaneous
  Country: FR (occurrence: FR)
  Receive Date: 20190710
  Receipt Date: 20200311
  Transmission Date: 20200409
  Serious: Yes (Hospitalization)
  Sender: FDA-Public Use
  Company Number: FR-MYLANLABS-2019M1063678

PATIENT
  Age: 40 Year
  Sex: Male

DRUGS (4)
  1. TAZOCILLINE [Suspect]
     Active Substance: PIPERACILLIN SODIUM\TAZOBACTAM SODIUM
     Indication: PNEUMONIA
     Dosage: 1 DOSAGE FORM, QD
     Route: 042
     Dates: start: 20180428, end: 20180511
  2. IOMERON [Suspect]
     Active Substance: IOMEPROL
     Indication: SCAN
     Dosage: UNK
     Route: 042
     Dates: start: 20180508, end: 20180519
  3. VANCOMYCIN [Suspect]
     Active Substance: VANCOMYCIN
     Indication: PNEUMONIA
     Dosage: 1 DOSAGE FORM, QD
     Route: 042
     Dates: start: 20180501, end: 20180511
  4. AMIKACIN                           /00391002/ [Concomitant]
     Active Substance: AMIKACIN
     Indication: PNEUMONIA
     Dosage: 1 DOSAGE FORM, QD (MYLAN)
     Dates: start: 20180428, end: 20180501

REACTIONS (6)
  - Hepatocellular injury [Recovered/Resolved]
  - Rash maculo-papular [Recovered/Resolved]
  - Cholestasis [Recovered/Resolved]
  - Pruritus [Recovered/Resolved]
  - Abdominal pain [Recovered/Resolved]
  - Pyrexia [Recovered/Resolved]

NARRATIVE: CASE EVENT DATE: 20180509
